FAERS Safety Report 18572049 (Version 1)
Quarter: 2020Q4

REPORT INFORMATION
  Report Type: Report from Study
  Country: CA (occurrence: CA)
  Receive Date: 20201202
  Receipt Date: 20201202
  Transmission Date: 20210114
  Serious: Yes (Hospitalization)
  Sender: FDA-Public Use
  Company Number: CA-TAKEDA-2020TUS053284

PATIENT
  Age: 71 Year
  Sex: Female

DRUGS (2)
  1. BACLOFEN. [Concomitant]
     Active Substance: BACLOFEN
  2. HUMAN NORMAL IMMUNOGLOBULIN; LIQUID 20 [Suspect]
     Active Substance: HUMAN IMMUNOGLOBULIN G
     Indication: PRIMARY IMMUNODEFICIENCY SYNDROME
     Dosage: 10 GRAM, 1/WEEK
     Route: 065
     Dates: start: 20181015

REACTIONS (2)
  - Muscle spasms [Unknown]
  - Anaemia [Unknown]

NARRATIVE: CASE EVENT DATE: 20200924
